FAERS Safety Report 5695766-7 (Version None)
Quarter: 2008Q2

REPORT INFORMATION
  Report Type: 
  Country: None (occurrence: None)
  Receive Date: 20080407
  Receipt Date: 20080327
  Transmission Date: 20081010
  Serious: Yes (Other)
  Sender: FDA-Public Use
  Company Number: JP-NOVOPROD-273393

PATIENT
  Age: 35 Year
  Sex: Female
  Weight: 47 kg

DRUGS (5)
  1. LEVEMIR [Suspect]
     Indication: TYPE 1 DIABETES MELLITUS
     Dosage: 10-30 IU, QD
     Route: 058
     Dates: start: 20071229
  2. LEVEMIR [Suspect]
     Dosage: 16 IU, UNK
     Route: 058
     Dates: start: 20080105
  3. LEVEMIR [Suspect]
     Dosage: 20 IU, UNK
     Route: 058
     Dates: start: 20070108
  4. NOVORAPID CHU [Suspect]
     Indication: TYPE 1 DIABETES MELLITUS
     Dosage: 10-30 IU, QD
     Route: 058
     Dates: start: 20071228
  5. LANTUS [Concomitant]
     Dosage: 10 IU, QD
     Route: 058
     Dates: start: 20071228, end: 20071228

REACTIONS (7)
  - ATRIOVENTRICULAR BLOCK FIRST DEGREE [None]
  - HEPATIC CONGESTION [None]
  - HEPATIC FUNCTION ABNORMAL [None]
  - HYDRONEPHROSIS [None]
  - OEDEMA PERIPHERAL [None]
  - PLEURAL EFFUSION [None]
  - WEIGHT INCREASED [None]
